FAERS Safety Report 25374602 (Version 1)
Quarter: 2025Q2

REPORT INFORMATION
  Report Type: Spontaneous
  Country: US (occurrence: US)
  Receive Date: 20250529
  Receipt Date: 20250529
  Transmission Date: 20250717
  Serious: No
  Sender: INCYTE
  Company Number: US-EVENT-002778

PATIENT

DRUGS (1)
  1. OPZELURA [Suspect]
     Active Substance: RUXOLITINIB PHOSPHATE
     Indication: Alopecia universalis
     Dosage: 0.6 PERCENT, BID FOR 12 WEEKS,  TO THE SCALP AND EYEBROW REGIONS

REACTIONS (3)
  - White blood cell count decreased [Unknown]
  - Drug effective for unapproved indication [Unknown]
  - Off label use [Unknown]
